FAERS Safety Report 7179897-0 (Version None)
Quarter: 2010Q4

REPORT INFORMATION
  Report Type: 
  Country: None (occurrence: None)
  Receive Date: 20101208
  Receipt Date: 20101123
  Transmission Date: 20110411
  Serious: Yes (Hospitalization)
  Sender: FDA-Public Use
  Company Number: JPI-P-012803

PATIENT
  Age: 16 Year
  Sex: Male

DRUGS (5)
  1. XYREM [Suspect]
     Indication: INSOMNIA
     Dosage: 4.5 GM (2.25 GM,2 IN 1 D),ORAL ; 6 GM (3 GM,2 IN 1 D),ORAL ; 6.5 GM (3.25 GM,2 IN 1 D),ORAL
     Route: 048
     Dates: start: 20100812, end: 20100101
  2. XYREM [Suspect]
     Indication: INSOMNIA
     Dosage: 4.5 GM (2.25 GM,2 IN 1 D),ORAL ; 6 GM (3 GM,2 IN 1 D),ORAL ; 6.5 GM (3.25 GM,2 IN 1 D),ORAL
     Route: 048
     Dates: start: 20100723, end: 20100811
  3. XYREM [Suspect]
     Indication: INSOMNIA
     Dosage: 4.5 GM (2.25 GM,2 IN 1 D),ORAL ; 6 GM (3 GM,2 IN 1 D),ORAL ; 6.5 GM (3.25 GM,2 IN 1 D),ORAL
     Route: 048
     Dates: start: 20100101
  4. DULOXETIME HYDROCHLORIDE [Concomitant]
  5. UNSPECIFIED ANTIDEPRESSANTS [Concomitant]

REACTIONS (1)
  - NO ADVERSE EVENT [None]
